FAERS Safety Report 14316768 (Version 2)
Quarter: 2018Q4

REPORT INFORMATION
  Report Type: Spontaneous
  Country: US (occurrence: US)
  Receive Date: 20171222
  Receipt Date: 20181015
  Transmission Date: 20190204
  Serious: Yes (Other)
  Sender: FDA-Public Use
  Company Number: US-PFIZER INC-2017543187

PATIENT
  Age: 47 Year
  Sex: Female
  Weight: 98.41 kg

DRUGS (1)
  1. LYRICA [Suspect]
     Active Substance: PREGABALIN
     Dosage: 200 MG, 3X/DAY (QTY 270 / DAY SUPPLY 90)

REACTIONS (5)
  - Myocardial infarction [Unknown]
  - Seizure [Unknown]
  - Malaise [Unknown]
  - Visual impairment [Unknown]
  - Multiple sclerosis [Unknown]
